FAERS Safety Report 6659544-4 (Version None)
Quarter: 2010Q1

REPORT INFORMATION
  Report Type: 
  Country: None (occurrence: None)
  Receive Date: 20100330
  Receipt Date: 20100319
  Transmission Date: 20100710
  Serious: Yes (Death)
  Sender: FDA-Public Use
  Company Number: US-WYE-H14208110

PATIENT
  Sex: Male

DRUGS (6)
  1. IBUPROFEN [Suspect]
     Dosage: UNKNOWN
     Route: 048
  2. CAFFEINE [Suspect]
     Dosage: UNKNOWN
     Route: 048
  3. BENADRYL [Suspect]
     Indication: INSOMNIA
     Dosage: UNKNOWN
     Route: 048
  4. TYLENOL PM [Suspect]
     Indication: INSOMNIA
     Dosage: UNKNOWN
     Route: 048
  5. OXYCODONE [Suspect]
     Dosage: UNKNOWN
     Route: 065
  6. ADDERALL 30 [Suspect]
     Indication: ATTENTION DEFICIT/HYPERACTIVITY DISORDER
     Dosage: UNKNOWN
     Route: 048

REACTIONS (2)
  - DRUG TOXICITY [None]
  - OVERDOSE [None]
